FAERS Safety Report 8666801 (Version 2)
Quarter: 2012Q4

REPORT INFORMATION
  Report Type: 
  Country: US (occurrence: US)
  Receive Date: 20120716
  Receipt Date: 20120905
  Transmission Date: 20130627
  Serious: Yes (Life-Threatening, Other)
  Sender: FDA-Public Use
  Company Number: US-ASTRAZENECA-2012SE47550

PATIENT
  Age: 48 Year
  Sex: Female

DRUGS (1)
  1. SEROQUEL XR [Suspect]
     Route: 048

REACTIONS (6)
  - Road traffic accident [Unknown]
  - Spinal fracture [Unknown]
  - Amnesia [Unknown]
  - Face injury [Unknown]
  - Post-traumatic stress disorder [Unknown]
  - Drug dose omission [Unknown]
